FAERS Safety Report 25876443 (Version 1)
Quarter: 2025Q4

REPORT INFORMATION
  Report Type: Report from Study
  Country: US (occurrence: US)
  Receive Date: 20251003
  Receipt Date: 20251003
  Transmission Date: 20260117
  Serious: Yes (Hospitalization)
  Sender: ROCHE
  Company Number: US-ROCHE-10000400982

PATIENT
  Age: 28 Year
  Sex: Male

DRUGS (2)
  1. HEMLIBRA [Suspect]
     Active Substance: EMICIZUMAB-KXWH
     Indication: Factor VIII deficiency
     Dosage: INJECT 4.4ML (660MG) SUBCUTANEOUSLY EVERY 28 DAY(S) FOR PROPHYLAXIS
     Route: 058
  2. HEMLIBRA [Suspect]
     Active Substance: EMICIZUMAB-KXWH
     Dosage: INJECT 4.4ML (660MG) SUBCUTANEOUSLY EVERY 28 DAY(S) FOR PROPHYLAXIS
     Route: 058

REACTIONS (1)
  - Haemorrhage [Unknown]
